FAERS Safety Report 13805838 (Version 1)
Quarter: 2017Q3

REPORT INFORMATION
  Report Type: Spontaneous
  Country: JP (occurrence: JP)
  Receive Date: 20170728
  Receipt Date: 20170728
  Transmission Date: 20171127
  Serious: Yes (Hospitalization)
  Sender: FDA-Public Use
  Company Number: JP-PFIZER INC-2017326289

PATIENT
  Age: 40 Year
  Sex: Female

DRUGS (3)
  1. WYPAX [Concomitant]
     Active Substance: LORAZEPAM
     Dosage: 1 MG, DAILY
     Route: 048
  2. MYSLEE [Concomitant]
     Active Substance: ZOLPIDEM TARTRATE
  3. LYRICA [Suspect]
     Active Substance: PREGABALIN
     Dosage: 300 MG, DAILY
     Route: 048
     Dates: start: 2010

REACTIONS (7)
  - Drug withdrawal syndrome [Recovered/Resolved]
  - Abnormal behaviour [Recovered/Resolved]
  - Soliloquy [Recovered/Resolved]
  - Intentional overdose [Unknown]
  - Stupor [Recovered/Resolved]
  - Loss of consciousness [Recovered/Resolved]
  - Depressed level of consciousness [Recovered/Resolved]

NARRATIVE: CASE EVENT DATE: 20170712
